FAERS Safety Report 25503364 (Version 3)
Quarter: 2025Q3

REPORT INFORMATION
  Report Type: Report from Study
  Country: KR (occurrence: KR)
  Receive Date: 20250702
  Receipt Date: 20250828
  Transmission Date: 20251020
  Serious: Yes (Other)
  Sender: TAKEDA
  Company Number: KR-TAKEDA-2025TUS057860

PATIENT
  Age: 61 Year
  Sex: Female
  Weight: 47 kg

DRUGS (7)
  1. VEDOLIZUMAB [Suspect]
     Active Substance: VEDOLIZUMAB
     Indication: Colitis ulcerative
  2. VEDOLIZUMAB [Suspect]
     Active Substance: VEDOLIZUMAB
  3. ASACOL [Concomitant]
     Active Substance: MESALAMINE
     Indication: Haematochezia
     Dosage: 500 MILLIGRAM, QD
     Dates: start: 20241204, end: 20250103
  4. ENTOCORT [Concomitant]
     Active Substance: BUDESONIDE
     Dosage: UNK UNK, QD
     Dates: start: 20241204, end: 20241211
  5. Fexuclue [Concomitant]
     Indication: Dyspepsia
     Dosage: 40 MILLIGRAM, QD
     Dates: start: 20250226, end: 20250326
  6. Gaslon n od [Concomitant]
     Indication: Dyspepsia
     Dosage: 4 MILLIGRAM, QD
     Dates: start: 20250226, end: 20250326
  7. Gastin [Concomitant]
     Indication: Dyspepsia
     Dosage: UNK UNK, QD
     Dates: start: 20250226, end: 20250326

REACTIONS (1)
  - Haematochezia [Recovered/Resolved]

NARRATIVE: CASE EVENT DATE: 20241201
